FAERS Safety Report 11753300 (Version 2)
Quarter: 2015Q4

REPORT INFORMATION
  Report Type: Report from Study
  Country: AR (occurrence: AR)
  Receive Date: 20151119
  Receipt Date: 20151201
  Transmission Date: 20160304
  Serious: Yes (Other)
  Sender: FDA-Public Use
  Company Number: PHHY2015AR150188

PATIENT
  Sex: Male

DRUGS (3)
  1. BUDESONIDE. [Concomitant]
     Active Substance: BUDESONIDE
     Indication: PRODUCT USED FOR UNKNOWN INDICATION
     Dosage: 200 MG, UNK
     Route: 065
  2. SEEBRI BREEZHALER [Suspect]
     Active Substance: GLYCOPYRROLATE
     Indication: CHRONIC OBSTRUCTIVE PULMONARY DISEASE
     Route: 065
     Dates: start: 2014
  3. FORMOTEROL [Concomitant]
     Active Substance: FORMOTEROL
     Indication: PRODUCT USED FOR UNKNOWN INDICATION
     Dosage: 6.268 MG, UNK
     Route: 065

REACTIONS (4)
  - Urinary tract disorder [Not Recovered/Not Resolved]
  - Prostatomegaly [Not Recovered/Not Resolved]
  - Penile burning sensation [Not Recovered/Not Resolved]
  - Dysuria [Not Recovered/Not Resolved]
